FAERS Safety Report 14807773 (Version 7)
Quarter: 2019Q2

REPORT INFORMATION
  Report Type: Report from Study
  Country: US (occurrence: US)
  Receive Date: 20180425
  Receipt Date: 20190523
  Transmission Date: 20190711
  Serious: Yes (Death, Hospitalization)
  Sender: FDA-Public Use
  Company Number: US-ACTELION-A-US2017-153705

PATIENT
  Sex: Female

DRUGS (2)
  1. PRIMIDONE. [Concomitant]
     Active Substance: PRIMIDONE
  2. OPSUMIT [Suspect]
     Active Substance: MACITENTAN
     Indication: PULMONARY ARTERIAL HYPERTENSION
     Dosage: 10 MG, QD
     Route: 048
     Dates: start: 20170221, end: 20190418

REACTIONS (7)
  - Gait disturbance [Unknown]
  - Chronic obstructive pulmonary disease [Fatal]
  - Hypoxia [Unknown]
  - Treatment noncompliance [Unknown]
  - Mechanical ventilation [Not Recovered/Not Resolved]
  - Malaise [Unknown]
  - Cardiac failure congestive [Unknown]
